FAERS Safety Report 10368522 (Version 2)
Quarter: 2014Q4

REPORT INFORMATION
  Report Type: Report from Study
  Country: JP (occurrence: JP)
  Receive Date: 20140807
  Receipt Date: 20141004
  Transmission Date: 20150528
  Serious: Yes (Other)
  Sender: FDA-Public Use
  Company Number: JP-GILEAD-2014-0111249

PATIENT
  Age: 61 Year
  Sex: Female

DRUGS (7)
  1. DOGMATYL [Concomitant]
     Active Substance: SULPIRIDE
     Indication: DEPRESSION
     Dosage: 50 MG, TID
     Route: 048
     Dates: start: 20091109
  2. WYPAX [Concomitant]
     Active Substance: LORAZEPAM
     Indication: DEPRESSION
     Dosage: 0.5 MG, TID
     Route: 048
     Dates: start: 20111012
  3. NORVIR [Concomitant]
     Active Substance: RITONAVIR
     Indication: HIV INFECTION
     Route: 048
     Dates: start: 20090126, end: 20091220
  4. EPZICOM [Concomitant]
     Active Substance: ABACAVIR SULFATE\LAMIVUDINE
     Indication: HIV INFECTION
     Route: 048
     Dates: start: 20090126, end: 20090420
  5. ISENTRESS [Concomitant]
     Active Substance: RALTEGRAVIR POTASSIUM
     Indication: HIV INFECTION
     Dosage: 800 MG, QD
     Route: 048
     Dates: start: 20091221
  6. REYATAZ [Concomitant]
     Active Substance: ATAZANAVIR SULFATE
     Indication: HIV INFECTION
     Route: 048
     Dates: start: 20090126, end: 20091220
  7. EMTRICITABINE/TENOFOVIR DISOPROXIL FUMARATE [Suspect]
     Active Substance: EMTRICITABINE\TENOFOVIR DISOPROXIL
     Indication: HIV INFECTION
     Dosage: 1 DF, QD
     Route: 048
     Dates: start: 20090421, end: 20130707

REACTIONS (2)
  - Abdominal discomfort [Recovered/Resolved]
  - Osteoporosis [Recovering/Resolving]

NARRATIVE: CASE EVENT DATE: 200904
